FAERS Safety Report 17206373 (Version 1)
Quarter: 2019Q4

REPORT INFORMATION
  Report Type: Spontaneous
  Country: FR (occurrence: FR)
  Receive Date: 20191227
  Receipt Date: 20191227
  Transmission Date: 20200122
  Serious: Yes (Other)
  Sender: FDA-Public Use
  Company Number: FR-AMGEN-FRASP2019213289

PATIENT
  Age: 67 Year
  Sex: Female

DRUGS (1)
  1. XGEVA [Suspect]
     Active Substance: DENOSUMAB
     Indication: SOLITARY FIBROUS TUMOUR
     Dosage: 120 MILLIGRAM, QMO
     Route: 058
     Dates: start: 2018

REACTIONS (1)
  - Jaw fistula [Not Recovered/Not Resolved]

NARRATIVE: CASE EVENT DATE: 201911
